FAERS Safety Report 19023471 (Version 1)
Quarter: 2021Q1

REPORT INFORMATION
  Report Type: Spontaneous
  Country: MY (occurrence: MY)
  Receive Date: 20210318
  Receipt Date: 20210318
  Transmission Date: 20210420
  Serious: Yes (Other)
  Sender: FDA-Public Use
  Company Number: MY-SUN PHARMACEUTICAL INDUSTRIES LTD-2021R1-286150

PATIENT
  Sex: Male

DRUGS (14)
  1. ASPIRIN. [Suspect]
     Active Substance: ASPIRIN
     Indication: IRON OVERLOAD
     Dosage: ONCE DAILY
     Route: 064
  2. HYDROXYUREA. [Suspect]
     Active Substance: HYDROXYUREA
     Indication: OSTEOPOROSIS
  3. ROCALTROL [Suspect]
     Active Substance: CALCITRIOL
     Indication: IRON OVERLOAD
     Dosage: 0.25 MILLIGRAM, DAILY
     Route: 064
  4. HYDROXYUREA. [Suspect]
     Active Substance: HYDROXYUREA
     Indication: IRON OVERLOAD
     Dosage: UNK
     Route: 064
  5. FERRIPROX [Suspect]
     Active Substance: DEFERIPRONE
     Indication: OSTEOPOROSIS
  6. PENICILLIN V [Suspect]
     Active Substance: PENICILLIN V
     Indication: ANTIBIOTIC THERAPY
     Dosage: 250 MILLIGRAM, BID
     Route: 064
  7. DESFERAL [Suspect]
     Active Substance: DEFEROXAMINE MESYLATE
     Indication: IRON OVERLOAD
     Dosage: 3 GRAM, DAILY, (OD) 5 TIMES PER WEEK
     Route: 064
  8. FOSAMAX [Suspect]
     Active Substance: ALENDRONATE SODIUM
     Indication: IRON OVERLOAD
     Dosage: 70 MILLIGRAM, WEEKLY
     Route: 064
  9. DESFERAL [Suspect]
     Active Substance: DEFEROXAMINE MESYLATE
     Indication: OSTEOPOROSIS
  10. FOSAMAX [Suspect]
     Active Substance: ALENDRONATE SODIUM
     Indication: OSTEOPOROSIS
  11. ASPIRIN. [Suspect]
     Active Substance: ASPIRIN
     Indication: OSTEOPOROSIS
  12. FERRIPROX [Suspect]
     Active Substance: DEFERIPRONE
     Indication: IRON OVERLOAD
     Dosage: 1000 MILLIGRAM, TID
     Route: 064
  13. FERRIPROX [Suspect]
     Active Substance: DEFERIPRONE
     Indication: HAEMOSIDEROSIS
  14. ROCALTROL [Suspect]
     Active Substance: CALCITRIOL
     Indication: OSTEOPOROSIS

REACTIONS (4)
  - Foetal distress syndrome [Unknown]
  - Foetal growth restriction [Unknown]
  - Premature baby [Unknown]
  - Foetal exposure during pregnancy [Unknown]
